FAERS Safety Report 5677749-6 (Version None)
Quarter: 2008Q1

REPORT INFORMATION
  Report Type: 
  Country: None (occurrence: None)
  Receive Date: 20080324
  Receipt Date: 20071211
  Transmission Date: 20080703
  Serious: No
  Sender: FDA-Public Use
  Company Number: US-ABBOTT-07P-163-0430223-00

PATIENT
  Age: 36 Year
  Sex: Female

DRUGS (4)
  1. BIAXIN XL [Suspect]
     Indication: EPSTEIN-BARR VIRUS INFECTION
     Route: 048
     Dates: start: 20040101
  2. ESTRADIOL [Suspect]
     Indication: HORMONE THERAPY
     Route: 061
     Dates: start: 20070904, end: 20070905
  3. SUCRALFATE [Concomitant]
     Indication: DRUG USE FOR UNKNOWN INDICATION
  4. ALPRAZOLAM [Concomitant]
     Indication: DRUG USE FOR UNKNOWN INDICATION

REACTIONS (10)
  - DEPRESSED MOOD [None]
  - DIZZINESS [None]
  - DRUG INTERACTION [None]
  - DYSPNOEA [None]
  - FATIGUE [None]
  - FEELING ABNORMAL [None]
  - HEADACHE [None]
  - IRRITABILITY [None]
  - MEMORY IMPAIRMENT [None]
  - NERVOUSNESS [None]
